FAERS Safety Report 6810899-7 (Version None)
Quarter: 2010Q2

REPORT INFORMATION
  Report Type: 
  Country: None (occurrence: None)
  Receive Date: 20100630
  Receipt Date: 20080830
  Transmission Date: 20101027
  Serious: No
  Sender: FDA-Public Use
  Company Number: US-PFIZER INC-2008064220

PATIENT
  Sex: Female
  Weight: 91.17 kg

DRUGS (2)
  1. ESTRING [Suspect]
     Indication: HORMONE LEVEL ABNORMAL
     Dates: start: 20080701
  2. CRESTOR [Concomitant]

REACTIONS (2)
  - FRUSTRATION [None]
  - VULVOVAGINAL DISCOMFORT [None]
